FAERS Safety Report 9861370 (Version 1)
Quarter: 2014Q1

REPORT INFORMATION
  Report Type: Spontaneous
  Country: US (occurrence: US)
  Receive Date: 20140203
  Receipt Date: 20140203
  Transmission Date: 20141002
  Serious: Yes (Other)
  Sender: FDA-Public Use
  Company Number: US-AMGEN-USASP2013091936

PATIENT
  Age: 51 Year
  Sex: Male
  Weight: 73.03 kg

DRUGS (2)
  1. ENBREL [Suspect]
     Indication: ANKYLOSING SPONDYLITIS
     Dosage: UNK
     Route: 058
  2. LOVENOX [Concomitant]
     Dosage: UNK

REACTIONS (2)
  - Carcinoid tumour of the gastrointestinal tract [Unknown]
  - Metastases to liver [Unknown]
